FAERS Safety Report 13706419 (Version 1)
Quarter: 2017Q2

REPORT INFORMATION
  Report Type: Spontaneous
  Country: DE (occurrence: DE)
  Receive Date: 20170630
  Receipt Date: 20170630
  Transmission Date: 20170830
  Serious: Yes (Death)
  Sender: FDA-Public Use
  Company Number: DE-BIOVITRUM-2017DE0626

PATIENT
  Age: 36 Year
  Sex: Female

DRUGS (5)
  1. KINERET [Suspect]
     Active Substance: ANAKINRA
     Indication: PYODERMA GANGRENOSUM
  2. CYCLOPSORIN [Concomitant]
     Indication: PYODERMA GANGRENOSUM
  3. KINERET [Suspect]
     Active Substance: ANAKINRA
     Indication: SKIN ULCER
  4. TACROLIMUS. [Concomitant]
     Active Substance: TACROLIMUS
     Indication: PYODERMA GANGRENOSUM
  5. GRANULOCYTE COLONY-STIMULATING FACTOR [Concomitant]
     Active Substance: GRANULOCYTE COLONY-STIMULATING FACTOR NOS
     Indication: NEUTROPENIA

REACTIONS (2)
  - Sepsis [Fatal]
  - Multiple organ dysfunction syndrome [Fatal]
